FAERS Safety Report 8838673 (Version 7)
Quarter: 2013Q2

REPORT INFORMATION
  Report Type: Report from Study
  Country: GR (occurrence: GR)
  Receive Date: 20121012
  Receipt Date: 20130509
  Transmission Date: 20140414
  Serious: Yes (Hospitalization)
  Sender: FDA-Public Use
  Company Number: GR-PFIZER INC-2012243833

PATIENT
  Age: 62 Year
  Sex: Female
  Weight: 56 kg

DRUGS (9)
  1. TORISEL [Suspect]
     Indication: PANCREATIC CARCINOMA METASTATIC
     Dosage: 25 MG, WEEKLY
     Route: 042
     Dates: start: 20120820, end: 20121024
  2. GEMZAR [Suspect]
     Indication: PANCREATIC CARCINOMA METASTATIC
     Dosage: 1000 MG/M2 (SINGLE DOSE: 1530 MG), EVERY 2 WEEKS
     Route: 042
     Dates: start: 20120820, end: 20120820
  3. GEMZAR [Suspect]
     Dosage: 1000 MG/M2 (SINGLE DOSE: 1500 MG), EVERY 2 WEEKS
     Route: 042
     Dates: start: 20120919, end: 20120919
  4. GEMZAR [Suspect]
     Dosage: 1000 MG/M2 (SINGLE DOSE: 1400 MG), EVERY 2 WEEKS
     Route: 042
     Dates: start: 20121003, end: 20121003
  5. ZOFRON [Concomitant]
     Indication: PREMEDICATION
     Dosage: 8 MG, (EVERY THERAPY)
     Route: 042
     Dates: start: 20120820, end: 20120924
  6. ZANTAC [Concomitant]
     Indication: PREMEDICATION
     Dosage: 50 MG, (EVERY THERAPY)
     Route: 042
     Dates: start: 20120820, end: 20120924
  7. FENISTIL [Concomitant]
     Indication: PREMEDICATION
     Dosage: 8 MG, (EVERY THERAPY)
     Route: 042
     Dates: start: 20120820, end: 20120924
  8. DEXAMETHASONE [Concomitant]
     Indication: PREMEDICATION
     Dosage: 4 MG,(EVERY THERAPY)
     Route: 042
     Dates: start: 20120820, end: 20120924
  9. SOPA-K [Concomitant]
     Indication: HYPOKALAEMIA
     Dosage: 200 ML, 1X/DAY
     Dates: start: 20121003

REACTIONS (1)
  - Bacteraemia [Not Recovered/Not Resolved]
